FAERS Safety Report 7629559-8 (Version None)
Quarter: 2011Q3

REPORT INFORMATION
  Report Type: 
  Country: None (occurrence: None)
  Receive Date: 20110722
  Receipt Date: 20110609
  Transmission Date: 20111222
  Serious: No
  Sender: FDA-Public Use
  Company Number: US-BAYER-2011-050543

PATIENT
  Age: 38 Year
  Sex: Female
  Weight: 57.596 kg

DRUGS (8)
  1. BETASERON [Suspect]
     Dosage: 0.25 ML
     Route: 058
  2. BETASERON [Suspect]
     Dosage: 1 ML, QOD
     Route: 058
  3. BETASERON [Suspect]
     Dosage: 0.75 ML
     Route: 058
  4. CELEXA [Concomitant]
     Dosage: 10 MG, UNK
  5. VITAMIN D [Concomitant]
     Dosage: 1000 U, UNK
  6. MULTI-VITAMIN [Concomitant]
  7. BETASERON [Suspect]
     Dosage: 0.5 ML
     Route: 058
  8. ALPRAZOLAM [Concomitant]
     Dosage: 0.25 MG, UNK

REACTIONS (2)
  - THROAT IRRITATION [None]
  - MASS [None]
